FAERS Safety Report 22028829 (Version 1)
Quarter: 2023Q1

REPORT INFORMATION
  Report Type: Spontaneous
  Country: US (occurrence: None)
  Receive Date: 20230220
  Receipt Date: 20230220
  Transmission Date: 20230417
  Serious: Yes (Hospitalization)
  Sender: FDA-Public Use
  Company Number: None

PATIENT
  Sex: Female

DRUGS (1)
  1. SILDENAFIL CITRATE [Suspect]
     Active Substance: SILDENAFIL CITRATE
     Indication: Cardiac disorder
     Dosage: FREQUENCY : 3 TIMES A DAY;?
     Route: 048
     Dates: start: 20181106

REACTIONS (8)
  - Diarrhoea [None]
  - Nausea [None]
  - Vomiting [None]
  - Dehydration [None]
  - Dry eye [None]
  - Corneal abrasion [None]
  - Petechiae [None]
  - Eyelid disorder [None]
